FAERS Safety Report 15487081 (Version 1)
Quarter: 2018Q4

REPORT INFORMATION
  Report Type: Spontaneous
  Country: US (occurrence: US)
  Receive Date: 20181010
  Receipt Date: 20181010
  Transmission Date: 20190205
  Serious: Yes (Hospitalization, Other)
  Sender: FDA-Public Use
  Company Number: None

PATIENT
  Age: 70 Year
  Sex: Male
  Weight: 75.7 kg

DRUGS (22)
  1. AL HYDROXIDE/MG HYDROXIDE/SIMETHICONE [Concomitant]
     Dates: start: 20180926, end: 20180930
  2. CHOLECALCIFEROL [Concomitant]
     Active Substance: CHOLECALCIFEROL
     Dates: start: 20180918, end: 20181001
  3. CYCLOBENZAPRINE. [Concomitant]
     Active Substance: CYCLOBENZAPRINE
     Dates: start: 20180927, end: 20180927
  4. FUROSEMIDE. [Concomitant]
     Active Substance: FUROSEMIDE
     Dates: start: 20180923, end: 20181005
  5. MORPHINE [Concomitant]
     Active Substance: MORPHINE
     Dates: start: 20180927, end: 20180928
  6. ALLOPURINOL. [Concomitant]
     Active Substance: ALLOPURINOL
     Dates: start: 20180919
  7. ALPRAZOLAM. [Concomitant]
     Active Substance: ALPRAZOLAM
     Dates: start: 20180923, end: 20180930
  8. RENAGEL [Suspect]
     Active Substance: SEVELAMER HYDROCHLORIDE
     Indication: HYPERPHOSPHATAEMIA
     Route: 048
     Dates: start: 20180929, end: 20180930
  9. TRISENOX [Concomitant]
     Active Substance: ARSENIC TRIOXIDE
     Dates: start: 20180921, end: 20180927
  10. HYDRALAZINE [Concomitant]
     Active Substance: HYDRALAZINE HYDROCHLORIDE
     Dates: start: 20180925
  11. INSULIN LISPRO [Concomitant]
     Active Substance: INSULIN LISPRO
     Dates: start: 20180930
  12. IRBESARTAN. [Concomitant]
     Active Substance: IRBESARTAN
     Dates: start: 20180920, end: 20181006
  13. MULTIVITAMIN WITH MINERALS [Concomitant]
     Active Substance: MINERALS\VITAMINS
     Dates: start: 20180918, end: 20180930
  14. DIPHENHYDRAMINE. [Concomitant]
     Active Substance: DIPHENHYDRAMINE
     Dates: start: 20180927
  15. ACETAMINOPHEN. [Concomitant]
     Active Substance: ACETAMINOPHEN
     Dates: start: 20180917
  16. DEXAMETHASONE. [Concomitant]
     Active Substance: DEXAMETHASONE
     Dates: start: 20180926, end: 20181010
  17. FLUCONAZOLE. [Concomitant]
     Active Substance: FLUCONAZOLE
     Dates: start: 20180919
  18. TRETINOIN. [Concomitant]
     Active Substance: TRETINOIN
     Dates: start: 20180920, end: 20180928
  19. HYDROMORPHONE [Concomitant]
     Active Substance: HYDROMORPHONE
     Dates: start: 20180926, end: 20181007
  20. GABAPENTIN. [Concomitant]
     Active Substance: GABAPENTIN
     Dates: start: 20180926, end: 20181002
  21. ACYCLOVIR. [Concomitant]
     Active Substance: ACYCLOVIR
     Dates: start: 20180919
  22. HYDROXYUREA. [Concomitant]
     Active Substance: HYDROXYUREA
     Dates: start: 20180924, end: 20181007

REACTIONS (6)
  - Nausea [None]
  - Vomiting [None]
  - Abdominal pain lower [None]
  - Blood pressure increased [None]
  - Dyspnoea [None]
  - Large intestinal haemorrhage [None]

NARRATIVE: CASE EVENT DATE: 20180930
